FAERS Safety Report 4939072-4 (Version None)
Quarter: 2006Q1

REPORT INFORMATION
  Report Type: 
  Country: None (occurrence: None)
  Receive Date: 20060306
  Receipt Date: 20060222
  Transmission Date: 20060701
  Serious: Yes (Hospitalization)
  Sender: FDA-Public Use
  Company Number: 230983K06USA

PATIENT
  Age: 56 Year
  Sex: Female

DRUGS (4)
  1. REBIF [Suspect]
     Indication: MULTIPLE SCLEROSIS
     Dosage: SEE IMAGE
     Route: 058
     Dates: start: 20021001, end: 20050401
  2. REBIF [Suspect]
     Indication: MULTIPLE SCLEROSIS
     Dosage: SEE IMAGE
     Route: 058
     Dates: start: 20051201
  3. BACLOFEN [Suspect]
     Dosage: SEE IMAGE
     Route: 037
     Dates: start: 20040101
  4. BACLOFEN [Suspect]
     Dosage: SEE IMAGE
     Route: 037
     Dates: start: 20050401

REACTIONS (6)
  - ANAESTHETIC COMPLICATION [None]
  - DIPLEGIA [None]
  - DRUG INEFFECTIVE [None]
  - MUSCLE SPASTICITY [None]
  - SEDATION [None]
  - SKIN INFECTION [None]
